FAERS Safety Report 6730936-8 (Version None)
Quarter: 2010Q2

REPORT INFORMATION
  Report Type: 
  Country: None (occurrence: None)
  Receive Date: 20100518
  Receipt Date: 20100510
  Transmission Date: 20101027
  Serious: Yes (Other)
  Sender: FDA-Public Use
  Company Number: GB-B.I. PHARMACEUTICALS,INC./RIDGEFIELD-2010-BP-04936BP

PATIENT
  Sex: Female

DRUGS (5)
  1. VIRAMUNE [Suspect]
     Indication: ANTIVIRAL TREATMENT
     Dates: start: 20070816
  2. EPZICOM [Suspect]
     Indication: ANTIVIRAL TREATMENT
     Dates: start: 20070101
  3. COMBIVIR [Suspect]
     Indication: ANTIVIRAL TREATMENT
     Dates: start: 20070801
  4. EFAVIRENZ [Suspect]
     Indication: ANTIVIRAL TREATMENT
     Dates: start: 20021001
  5. KALETRA [Suspect]
     Indication: ANTIVIRAL TREATMENT
     Dates: start: 20070920

REACTIONS (1)
  - ABORTION INDUCED [None]
